FAERS Safety Report 5132542-8 (Version None)
Quarter: 2006Q4

REPORT INFORMATION
  Report Type: 
  Country: None (occurrence: None)
  Receive Date: 20061023
  Receipt Date: 20060913
  Transmission Date: 20070319
  Serious: Yes (Congenital Anomaly)
  Sender: FDA-Public Use
  Company Number: DE-ROCHE-463059

PATIENT
  Sex: Female
  Weight: 1.9 kg

DRUGS (1)
  1. NAPROXEN SODIUM [Suspect]
     Indication: MYALGIA

REACTIONS (17)
  - APGAR SCORE LOW [None]
  - CAESAREAN SECTION [None]
  - CANDIDA SEPSIS [None]
  - DIALYSIS [None]
  - DISSEMINATED INTRAVASCULAR COAGULATION [None]
  - DRUG EXPOSURE DURING PREGNANCY [None]
  - FOETAL GROWTH RETARDATION [None]
  - FOETAL MOVEMENTS DECREASED [None]
  - GENERALISED OEDEMA [None]
  - ILEITIS [None]
  - INTESTINAL PERFORATION [None]
  - NEONATAL ASPHYXIA [None]
  - NEONATAL DISORDER [None]
  - OLIGOHYDRAMNIOS [None]
  - RENAL APLASIA [None]
  - SEPSIS [None]
  - THERAPY NON-RESPONDER [None]
